FAERS Safety Report 4432351-9 (Version None)
Quarter: 2004Q3

REPORT INFORMATION
  Report Type: 
  Country: None (occurrence: None)
  Receive Date: 20040825
  Receipt Date: 20040817
  Transmission Date: 20050211
  Serious: Yes (Other)
  Sender: FDA-Public Use
  Company Number: IT-BRISTOL-MYERS SQUIBB COMPANY-12673737

PATIENT

DRUGS (6)
  1. CARMUSTINE [Suspect]
     Indication: MALIGNANT MELANOMA
     Dosage: DAY 1
     Route: 042
  2. CISPLATIN [Suspect]
     Indication: MALIGNANT MELANOMA
     Dosage: DAYS 1-3
     Route: 042
  3. TAMOXIFEN [Suspect]
     Indication: MALIGNANT MELANOMA
     Dosage: PRIOR TO CHEMOTHERAPY
     Route: 048
  4. DTIC-DOME [Suspect]
     Indication: MALIGNANT MELANOMA
     Dosage: 220 MG/M2 IV DAYS 1-3 EVERY 28 DAYS (ARM A) OR 1200 MG/M2 IV DAY 1 EVERY 21 DAYS (ARM B).
     Route: 042
  5. ONDANSETRON [Concomitant]
     Indication: PROPHYLAXIS OF NAUSEA AND VOMITING
     Route: 042
  6. DEXAMETHASONE [Concomitant]
     Indication: PROPHYLAXIS OF NAUSEA AND VOMITING
     Route: 042

REACTIONS (9)
  - ALOPECIA [None]
  - ANAEMIA [None]
  - DEEP VEIN THROMBOSIS [None]
  - INFECTION [None]
  - LEUKOPENIA [None]
  - NAUSEA [None]
  - NEUTROPENIA [None]
  - THROMBOCYTOPENIA [None]
  - VOMITING [None]
